FAERS Safety Report 24120156 (Version 1)
Quarter: 2024Q3

REPORT INFORMATION
  Report Type: Spontaneous
  Country: FR (occurrence: FR)
  Receive Date: 20240722
  Receipt Date: 20240722
  Transmission Date: 20241017
  Serious: Yes (Life-Threatening, Hospitalization)
  Sender: Waylis
  Company Number: None

PATIENT
  Age: 38 Year
  Sex: Male
  Weight: 135 kg

DRUGS (4)
  1. VALIUM [Interacting]
     Active Substance: DIAZEPAM
     Indication: Alcohol withdrawal syndrome
     Route: 050
  2. HEROIN [Suspect]
     Active Substance: DIAMORPHINE
     Indication: Product used for unknown indication
     Route: 050
     Dates: start: 2004, end: 2018
  3. HEROIN [Suspect]
     Active Substance: DIAMORPHINE
     Route: 050
     Dates: start: 2018
  4. METHADONE [Suspect]
     Active Substance: METHADONE HYDROCHLORIDE
     Indication: Product used for unknown indication
     Route: 050

REACTIONS (2)
  - Toxicity to various agents [Recovering/Resolving]
  - Drug dependence [Not Recovered/Not Resolved]

NARRATIVE: CASE EVENT DATE: 20040101
